FAERS Safety Report 14777706 (Version 3)
Quarter: 2018Q2

REPORT INFORMATION
  Report Type: Spontaneous
  Country: US (occurrence: US)
  Receive Date: 20180419
  Receipt Date: 20180524
  Transmission Date: 20180711
  Serious: No
  Sender: FDA-Public Use
  Company Number: US-PFIZER INC-2018155080

PATIENT
  Age: 83 Year
  Sex: Female

DRUGS (6)
  1. WARFARIN [Suspect]
     Active Substance: WARFARIN
     Indication: ANTICOAGULANT THERAPY
  2. WARFARIN [Suspect]
     Active Substance: WARFARIN
     Indication: PERIPHERAL SWELLING
     Dosage: 7.5 MG, UNK (4X WK)
  3. WARFARIN [Suspect]
     Active Substance: WARFARIN
     Indication: FLUID RETENTION
     Dosage: 5 MG, UNK (3X WK)
  4. FUROSEMIDE. [Suspect]
     Active Substance: FUROSEMIDE
     Indication: FLUID RETENTION
     Dosage: 40 MG, DAILY
  5. FUROSEMIDE. [Suspect]
     Active Substance: FUROSEMIDE
     Indication: PERIPHERAL SWELLING
     Dosage: 80 MG, DAILY
  6. COUMADIN [Suspect]
     Active Substance: WARFARIN SODIUM
     Dosage: UNK

REACTIONS (1)
  - Drug effect incomplete [Not Recovered/Not Resolved]
